FAERS Safety Report 10425007 (Version 5)
Quarter: 2014Q3

REPORT INFORMATION
  Report Type: Report from Study
  Country: US (occurrence: US)
  Receive Date: 20140902
  Receipt Date: 20140922
  Transmission Date: 20150326
  Serious: Yes (Other)
  Sender: FDA-Public Use
  Company Number: US-SA-2014SA115821

PATIENT
  Age: 52 Year
  Sex: Female

DRUGS (5)
  1. ZOFRAN [Concomitant]
     Active Substance: ONDANSETRON HYDROCHLORIDE
     Indication: MIGRAINE
  2. AUBAGIO [Suspect]
     Active Substance: TERIFLUNOMIDE
     Indication: MULTIPLE SCLEROSIS
     Route: 048
     Dates: start: 20140822
  3. AUBAGIO [Suspect]
     Active Substance: TERIFLUNOMIDE
     Indication: MULTIPLE SCLEROSIS
     Route: 048
     Dates: end: 20140902
  4. MORPHINE [Concomitant]
     Active Substance: MORPHINE
     Indication: MIGRAINE
  5. VALIUM [Concomitant]
     Active Substance: DIAZEPAM
     Indication: MIGRAINE

REACTIONS (16)
  - Convulsion [Unknown]
  - Diarrhoea [Unknown]
  - Pyrexia [Unknown]
  - Hypertension [Unknown]
  - Sleep disorder [Unknown]
  - Blood pressure abnormal [Unknown]
  - Headache [Unknown]
  - Drug dose omission [Unknown]
  - Chest pain [Unknown]
  - Head discomfort [Unknown]
  - Nausea [Unknown]
  - Speech disorder [Unknown]
  - Malaise [Unknown]
  - Dysgeusia [Unknown]
  - Feeling abnormal [Unknown]
  - Insomnia [Unknown]

NARRATIVE: CASE EVENT DATE: 201408
